FAERS Safety Report 5448444-3 (Version None)
Quarter: 2007Q3

REPORT INFORMATION
  Report Type: 
  Country: None (occurrence: None)
  Receive Date: 20070906
  Receipt Date: 20070821
  Transmission Date: 20080115
  Serious: Yes (Hospitalization)
  Sender: FDA-Public Use
  Company Number: 002#2#2007-00149

PATIENT
  Age: 57 Year
  Sex: Female
  Weight: 80 kg

DRUGS (12)
  1. GLYCOLAX [Suspect]
     Indication: ABDOMINAL PAIN
     Dosage: 17 G, 2 IN 1 D, ORAL; 17G, 2 IN 1 D, ORAL; 34G, 2 IN 1 D, ORAL
     Route: 048
     Dates: start: 20060101, end: 20070801
  2. GLYCOLAX [Suspect]
     Indication: ABDOMINAL PAIN
     Dosage: 17 G, 2 IN 1 D, ORAL; 17G, 2 IN 1 D, ORAL; 34G, 2 IN 1 D, ORAL
     Route: 048
     Dates: start: 20060101, end: 20070801
  3. GLYCOLAX [Suspect]
     Indication: ABDOMINAL PAIN
     Dosage: 17 G, 2 IN 1 D, ORAL; 17G, 2 IN 1 D, ORAL; 34G, 2 IN 1 D, ORAL
     Route: 048
     Dates: start: 20070801, end: 20070818
  4. METAMUCIL [Concomitant]
  5. LIBRAX [Concomitant]
  6. REGLAN [Concomitant]
  7. PERCOCET [Concomitant]
  8. MS CONTIN [Concomitant]
  9. CELEXA [Concomitant]
  10. XANAX [Concomitant]
  11. CLONAZEPAM [Concomitant]
  12. PLAVIX [Concomitant]

REACTIONS (3)
  - ABDOMINAL PAIN [None]
  - CONDITION AGGRAVATED [None]
  - GASTROINTESTINAL OBSTRUCTION [None]
